FAERS Safety Report 22268418 (Version 1)
Quarter: 2023Q2

REPORT INFORMATION
  Report Type: Spontaneous
  Country: US (occurrence: US)
  Receive Date: 20230430
  Receipt Date: 20230430
  Transmission Date: 20230721
  Serious: No
  Sender: FDA-Public Use
  Company Number: US-SA-SAC20230427000170

PATIENT
  Age: 58 Year
  Sex: Female

DRUGS (29)
  1. KEVZARA [Suspect]
     Active Substance: SARILUMAB
     Indication: Rheumatoid arthritis
     Dosage: 150 MG, QOW
     Route: 058
     Dates: start: 202207
  2. COLLAGEN [Concomitant]
     Active Substance: COLLAGEN
  3. CYCLOBENZAPRINE HYDROCHLORIDE [Concomitant]
     Active Substance: CYCLOBENZAPRINE HYDROCHLORIDE
  4. ECHINACEA [ECHINACEA ANGUSTIFOLIA] [Concomitant]
  5. FISH OIL [Concomitant]
     Active Substance: FISH OIL
  6. LAMOTRIGINE [Concomitant]
     Active Substance: LAMOTRIGINE
  7. ORPHENADRINE CITRATE [Concomitant]
     Active Substance: ORPHENADRINE CITRATE
  8. VITAMIN B1 [Concomitant]
     Active Substance: THIAMINE HYDROCHLORIDE
  9. VITAMIN D2 [Concomitant]
     Active Substance: ERGOCALCIFEROL
  10. VITAMIN C [Concomitant]
     Active Substance: ASCORBIC ACID
  11. MELOXICAM [Concomitant]
     Active Substance: MELOXICAM
  12. PANTOPRAZOLE SODIUM [Concomitant]
     Active Substance: PANTOPRAZOLE SODIUM
  13. ROSUVASTATIN CALCIUM [Concomitant]
     Active Substance: ROSUVASTATIN CALCIUM
  14. LISINOPRIL [Concomitant]
     Active Substance: LISINOPRIL
  15. OMEPRAZOLE [Concomitant]
     Active Substance: OMEPRAZOLE
  16. LEVOTHYROXINE SODIUM [Concomitant]
     Active Substance: LEVOTHYROXINE SODIUM
  17. SIMVASTATIN [Concomitant]
     Active Substance: SIMVASTATIN
  18. DULOXETINE HYDROCHLORIDE [Concomitant]
     Active Substance: DULOXETINE HYDROCHLORIDE
  19. SEROQUEL [Concomitant]
     Active Substance: QUETIAPINE FUMARATE
  20. GABAPENTIN [Concomitant]
     Active Substance: GABAPENTIN
     Dosage: 600MG
  21. ATOMOXETINE HYDROCHLORIDE [Concomitant]
     Active Substance: ATOMOXETINE HYDROCHLORIDE
  22. HYDROCODONE [Concomitant]
     Active Substance: HYDROCODONE
  23. AMLODIPINE BESYLATE [Concomitant]
     Active Substance: AMLODIPINE BESYLATE
  24. TRIAMCINOLONE ACETONIDE [Concomitant]
     Active Substance: TRIAMCINOLONE ACETONIDE
  25. TRAZODONE HCL [Concomitant]
     Active Substance: TRAZODONE HYDROCHLORIDE
  26. MECLIZINE HYDROCHLORIDE [Concomitant]
     Active Substance: MECLIZINE HYDROCHLORIDE
  27. VITAMIN B [Concomitant]
     Active Substance: VITAMIN B
  28. VITAMINS NOS [Concomitant]
     Active Substance: VITAMINS
  29. PREDNISONE [Concomitant]
     Active Substance: PREDNISONE

REACTIONS (2)
  - Skin swelling [Unknown]
  - Incorrect dose administered [Unknown]
